FAERS Safety Report 23794004 (Version 1)
Quarter: 2024Q2

REPORT INFORMATION
  Report Type: Spontaneous
  Country: US (occurrence: None)
  Receive Date: 20240426
  Receipt Date: 20240426
  Transmission Date: 20240716
  Serious: No
  Sender: FDA-Public Use
  Company Number: None

PATIENT
  Age: 73 Year
  Sex: Male
  Weight: 52 kg

DRUGS (2)
  1. METOPROLOL TARTRATE [Suspect]
     Active Substance: METOPROLOL TARTRATE
     Indication: Atrial fibrillation
     Dosage: FREQUENCY : TWICE A DAY;?
     Route: 048
     Dates: start: 20200801, end: 20220714
  2. METOPROLOL TARTRATE [Suspect]
     Active Substance: METOPROLOL TARTRATE
     Indication: Hypertension

REACTIONS (9)
  - Bradycardia [None]
  - Hypophagia [None]
  - Asthenia [None]
  - SARS-CoV-2 test positive [None]
  - Hypertension [None]
  - Diarrhoea [None]
  - Therapy cessation [None]
  - Bundle branch block right [None]
  - Atrioventricular block first degree [None]

NARRATIVE: CASE EVENT DATE: 20220714
